FAERS Safety Report 7397055-1 (Version None)
Quarter: 2011Q2

REPORT INFORMATION
  Report Type: 
  Country: None (occurrence: None)
  Receive Date: 20110406
  Receipt Date: 20110331
  Transmission Date: 20111010
  Serious: Yes (Hospitalization, Congenital Anomaly)
  Sender: FDA-Public Use
  Company Number: A0685061A

PATIENT
  Sex: Male
  Weight: 2.7 kg

DRUGS (3)
  1. PRENATAL VITAMINS [Concomitant]
     Route: 064
     Dates: start: 20030101, end: 20040101
  2. PROCARDIA [Concomitant]
     Route: 064
     Dates: start: 20040101
  3. PAXIL [Suspect]
     Indication: ANXIETY
     Route: 064
     Dates: start: 20000701

REACTIONS (10)
  - CARDIAC MURMUR [None]
  - RESPIRATORY DISTRESS [None]
  - AORTIC STENOSIS [None]
  - BRAIN NEOPLASM [None]
  - BICUSPID AORTIC VALVE [None]
  - ATRIAL SEPTAL DEFECT [None]
  - PREMATURE BABY [None]
  - DRUG EXPOSURE DURING PREGNANCY [None]
  - PULMONARY MALFORMATION [None]
  - CEREBRAL VENTRICLE DILATATION [None]
